FAERS Safety Report 12287889 (Version 4)
Quarter: 2021Q3

REPORT INFORMATION
  Report Type: Report from Study
  Country: ES (occurrence: ES)
  Receive Date: 20160420
  Receipt Date: 20210914
  Transmission Date: 20211014
  Serious: Yes (Hospitalization)
  Sender: FDA-Public Use
  Company Number: ES-SHIRE-ES201604267

PATIENT
  Age: 30 Year
  Sex: Male

DRUGS (9)
  1. IDURSULFASE [Suspect]
     Active Substance: IDURSULFASE
     Dosage: 0.42 MG/KG, 1X/WEEK
     Route: 041
     Dates: start: 20100119, end: 20100326
  2. IDURSULFASE [Suspect]
     Active Substance: IDURSULFASE
     Dosage: 0.49 MG/KG, 1X/WEEK
     Route: 042
     Dates: start: 20080528, end: 20081003
  3. IDURSULFASE [Suspect]
     Active Substance: IDURSULFASE
     Dosage: UNK
     Route: 042
     Dates: start: 20120209
  4. IDURSULFASE [Suspect]
     Active Substance: IDURSULFASE
     Dosage: UNK
     Route: 042
     Dates: start: 20120725
  5. IDURSULFASE [Suspect]
     Active Substance: IDURSULFASE
     Dosage: 0.5 MILLIGRAM/KILOGRAM, 1/WEEK
     Route: 042
     Dates: start: 20130320
  6. METAMIZOL [Concomitant]
     Active Substance: METAMIZOLE SODIUM
     Indication: PAIN
     Dosage: 1 DF, 3X/DAY:TID (EVERY 8 HOURS)
     Route: 065
     Dates: start: 20111130, end: 20111201
  7. IDURSULFASE [Suspect]
     Active Substance: IDURSULFASE
     Dosage: 0.48 MILLIGRAM/KILOGRAM, 1/WEEK
     Route: 042
     Dates: start: 20090227
  8. IDURSULFASE [Suspect]
     Active Substance: IDURSULFASE
     Dosage: 4 MILLIGRAM/KILOGRAM
     Route: 042
  9. IDURSULFASE [Suspect]
     Active Substance: IDURSULFASE
     Indication: MUCOPOLYSACCHARIDOSIS II
     Dosage: 0.49 MG/KG, 1X/WEEK
     Route: 041
     Dates: start: 20080213

REACTIONS (2)
  - Surgery [Unknown]
  - Carpal tunnel syndrome [Recovered/Resolved]

NARRATIVE: CASE EVENT DATE: 20111130
